FAERS Safety Report 12713932 (Version 1)
Quarter: 2016Q3

REPORT INFORMATION
  Report Type: Report from Study
  Country: US (occurrence: US)
  Receive Date: 20160905
  Receipt Date: 20160905
  Transmission Date: 20161109
  Serious: No
  Sender: FDA-Public Use
  Company Number: US-AMGEN-USASL2016115334

PATIENT
  Age: 55 Year
  Sex: Female

DRUGS (2)
  1. FISH OIL [Suspect]
     Active Substance: FISH OIL
     Indication: BLOOD TRIGLYCERIDES INCREASED
     Dosage: UNK
     Route: 065
  2. ENBREL [Suspect]
     Active Substance: ETANERCEPT
     Indication: RHEUMATOID ARTHRITIS
     Dosage: 50 MG, WEEKLY ON FRIDAYS
     Route: 065

REACTIONS (7)
  - Fatigue [Not Recovered/Not Resolved]
  - Diarrhoea [Unknown]
  - Thinking abnormal [Unknown]
  - Asthenia [Unknown]
  - Blood triglycerides increased [Unknown]
  - Somnolence [Unknown]
  - Temperature intolerance [Unknown]
